FAERS Safety Report 5086093-X (Version None)
Quarter: 2006Q3

REPORT INFORMATION
  Report Type: 
  Country: None (occurrence: None)
  Receive Date: 20060818
  Receipt Date: 20060620
  Transmission Date: 20061208
  Serious: No
  Sender: FDA-Public Use
  Company Number: 2006VX000772

PATIENT

DRUGS (1)
  1. TOLCAPONE ( TOLCAPONE) [Suspect]

REACTIONS (2)
  - BILE DUCT OBSTRUCTION [None]
  - CHOLELITHIASIS [None]
